FAERS Safety Report 24888518 (Version 1)
Quarter: 2025Q1

REPORT INFORMATION
  Report Type: Spontaneous
  Country: US (occurrence: US)
  Receive Date: 20250127
  Receipt Date: 20250127
  Transmission Date: 20250408
  Serious: Yes (Other)
  Sender: ACCORD
  Company Number: US-Accord-466057

PATIENT
  Age: 37 Year
  Sex: Male

DRUGS (6)
  1. ARIPIPRAZOLE [Suspect]
     Active Substance: ARIPIPRAZOLE
     Indication: Antipsychotic therapy
     Dosage: AT BEDTIME
  2. LORAZEPAM [Concomitant]
     Active Substance: LORAZEPAM
     Indication: Agitation
     Route: 030
  3. VALPROIC ACID [Concomitant]
     Active Substance: VALPROIC ACID
     Indication: Affective disorder
  4. OLANZAPINE [Concomitant]
     Active Substance: OLANZAPINE
     Indication: Hallucination
  5. PRAZOSIN [Concomitant]
     Active Substance: PRAZOSIN
     Indication: Nightmare
  6. LORAZEPAM [Concomitant]
     Active Substance: LORAZEPAM
     Indication: Agitation
     Route: 030

REACTIONS (9)
  - Akathisia [Unknown]
  - Dry mouth [Unknown]
  - Delirium [Recovered/Resolved]
  - Disorientation [Unknown]
  - Aggression [Unknown]
  - Psychomotor hyperactivity [Unknown]
  - Affect lability [Unknown]
  - Hallucination, auditory [Unknown]
  - Condition aggravated [Unknown]
